FAERS Safety Report 7620958-7 (Version None)
Quarter: 2011Q3

REPORT INFORMATION
  Report Type: 
  Country: None (occurrence: None)
  Receive Date: 20110719
  Receipt Date: 20110715
  Transmission Date: 20111222
  Serious: Yes (Hospitalization)
  Sender: FDA-Public Use
  Company Number: IT-MERCK-1107ITA00003

PATIENT
  Age: 70 Year
  Sex: Female

DRUGS (7)
  1. DARBEPOETIN ALFA [Concomitant]
     Route: 065
  2. FOSAMAX PLUS D [Suspect]
     Indication: OSTEOPOROSIS
     Route: 048
     Dates: start: 20040201, end: 20110201
  3. LOSARTAN POTASSIUM [Concomitant]
     Route: 065
  4. ACETYLCARNITINE HYDROCHLORIDE [Concomitant]
     Route: 065
  5. MANIDIPINE HYDROCHLORIDE [Concomitant]
     Route: 065
  6. FOLIC ACID [Concomitant]
     Route: 065
  7. FUROSEMIDE SODIUM [Concomitant]
     Route: 065

REACTIONS (1)
  - OSTEONECROSIS [None]
